FAERS Safety Report 11382003 (Version 1)
Quarter: 2015Q3

REPORT INFORMATION
  Report Type: Spontaneous
  Country: US (occurrence: US)
  Receive Date: 20150811
  Receipt Date: 20150811
  Transmission Date: 20151125
  Serious: No
  Sender: FDA-Public Use
  Company Number: US-ELI_LILLY_AND_COMPANY-US200910006120

PATIENT
  Sex: Male

DRUGS (3)
  1. CIALIS [Suspect]
     Active Substance: TADALAFIL
     Indication: ERECTILE DYSFUNCTION
     Dosage: 20 MG, OTHER
     Route: 065
     Dates: start: 200909
  2. PLAVIX [Concomitant]
     Active Substance: CLOPIDOGREL BISULFATE
     Dosage: UNK, UNKNOWN
     Route: 065
  3. INSULIN [Concomitant]
     Active Substance: INSULIN NOS
     Dosage: UNK, UNKNOWN
     Route: 065

REACTIONS (3)
  - Hypoaesthesia [Unknown]
  - Pain in extremity [Unknown]
  - Drug ineffective [Unknown]

NARRATIVE: CASE EVENT DATE: 200909
